FAERS Safety Report 10588957 (Version 1)
Quarter: 2014Q4

REPORT INFORMATION
  Report Type: Report from Study
  Country: US (occurrence: US)
  Receive Date: 20141117
  Receipt Date: 20141117
  Transmission Date: 20150529
  Serious: Yes (Hospitalization)
  Sender: FDA-Public Use
  Company Number: US-ROCHE-1489945

PATIENT
  Age: 44 Year
  Sex: Male
  Weight: 85.71 kg

DRUGS (14)
  1. PREDNISONE ACETATE [Concomitant]
     Active Substance: PREDNISONE ACETATE
     Route: 065
     Dates: start: 20140925, end: 20141006
  2. CHOLECALCIFEROL [Concomitant]
     Active Substance: CHOLECALCIFEROL
     Route: 065
     Dates: start: 201407
  3. DEXAMETHASONE SODIUM SUCCINATE [Concomitant]
     Route: 065
     Dates: start: 20140925
  4. FAMOTIDINE. [Concomitant]
     Active Substance: FAMOTIDINE
     Route: 065
     Dates: start: 20140925, end: 20140925
  5. AMMONIUM CHLORIDE/DIPHENHYDRAMINE HYDROCHLORIDE/SODIUM CITRATE [Concomitant]
     Route: 065
     Dates: start: 20140925, end: 20140925
  6. ACETAMINOPHEN. [Concomitant]
     Active Substance: ACETAMINOPHEN
     Route: 065
     Dates: start: 20140925
  7. OMEGA FISH OIL [Concomitant]
     Active Substance: FISH OIL\OMEGA-3 FATTY ACIDS
     Route: 065
     Dates: start: 201407
  8. OBINUTUZUMAB [Suspect]
     Active Substance: OBINUTUZUMAB
     Indication: CHRONIC LYMPHOCYTIC LEUKAEMIA
     Route: 042
     Dates: start: 20141003
  9. ALLOPURINOL. [Concomitant]
     Active Substance: ALLOPURINOL
     Route: 065
     Dates: start: 201407
  10. TRU-016 [Suspect]
     Active Substance: INVESTIGATIONAL PRODUCT
     Indication: CHRONIC LYMPHOCYTIC LEUKAEMIA
     Route: 042
     Dates: start: 20141003
  11. COENZYME Q-10 [Concomitant]
     Route: 065
     Dates: start: 201407
  12. RESVERATROL [Concomitant]
     Active Substance: RESVERATROL
     Route: 065
     Dates: start: 201407
  13. ACICLOVIR SODIUM [Concomitant]
     Route: 065
     Dates: start: 20140925
  14. DIAZEPAM. [Concomitant]
     Active Substance: DIAZEPAM
     Route: 065
     Dates: start: 20140714

REACTIONS (1)
  - Cytokine release syndrome [Recovering/Resolving]

NARRATIVE: CASE EVENT DATE: 20141004
